FAERS Safety Report 9838197 (Version 1)
Quarter: 2013Q4

REPORT INFORMATION
  Report Type: Spontaneous
  Country: US (occurrence: None)
  Receive Date: 20131205
  Receipt Date: 20131205
  Transmission Date: 20140711
  Serious: Yes (Other)
  Sender: FDA-Public Use
  Company Number: 163-POMAL-13064460

PATIENT
  Age: 70 Year
  Sex: Female
  Weight: 250 kg

DRUGS (11)
  1. POMALYST [Suspect]
     Indication: PLASMA CELL MYELOMA
     Dosage: 4 MG, 21 IN 28 D, PO
     Route: 048
     Dates: start: 201305
  2. VITAMIN D3( COLECALCIFEROL)(TABLETS) [Concomitant]
  3. POTASSIUM CHLORIDE(POTASSIUM CHLORIDE) [Concomitant]
  4. LASIX(FUROSEMIDE) [Concomitant]
  5. DIOVAN(VALSARTAN) [Concomitant]
  6. ALPRAZOLAM(ALPRAZOLAM)(TABLETS) [Concomitant]
  7. LEVOTHYROXINE(LEVOTHYROXINE(TABLETS) [Concomitant]
  8. WARFARIN SODIUM (WARFARIN SODIUM) (TABLETS) [Concomitant]
  9. HYDROCODON/ACETAMINOPHEN(PROCET/USA) [Concomitant]
  10. ASPIRIN(ACETYLSALICYLIC ACID)(CHEWABLE TABLET) [Concomitant]
  11. METOPROLOL SUCCINATE (METOPROLOL SUCCINATE) [Concomitant]

REACTIONS (2)
  - Blood pressure increased [None]
  - Rash [None]
